FAERS Safety Report 13153566 (Version 2)
Quarter: 2017Q1

REPORT INFORMATION
  Report Type: Spontaneous
  Country: US (occurrence: US)
  Receive Date: 20170126
  Receipt Date: 20170330
  Transmission Date: 20170428
  Serious: Yes (Other)
  Sender: FDA-Public Use
  Company Number: US-ASTELLAS-2017US002568

PATIENT
  Age: 70 Year
  Sex: Female

DRUGS (8)
  1. VENLAFAXINE [Concomitant]
     Active Substance: VENLAFAXINE HYDROCHLORIDE
     Indication: IRRITABLE BOWEL SYNDROME
     Dosage: UNK UNK, UNKNOWN FREQ.
     Route: 065
  2. TIMOLOL. [Concomitant]
     Active Substance: TIMOLOL
     Indication: PRODUCT USED FOR UNKNOWN INDICATION
     Dosage: UNK UNK, UNKNOWN FREQ.
     Route: 065
  3. ACEBUTOLOL [Concomitant]
     Active Substance: ACEBUTOLOL
     Indication: HEART RATE INCREASED
     Dosage: UNK UNK, UNKNOWN FREQ.
     Route: 065
  4. MYRBETRIQ [Suspect]
     Active Substance: MIRABEGRON
     Indication: INCONTINENCE
     Route: 065
     Dates: start: 201612
  5. MYRBETRIQ [Suspect]
     Active Substance: MIRABEGRON
     Route: 065
     Dates: start: 20170117
  6. MYRBETRIQ [Suspect]
     Active Substance: MIRABEGRON
     Route: 048
     Dates: start: 201702
  7. ASPIRIN. [Concomitant]
     Active Substance: ASPIRIN
     Indication: PRODUCT USED FOR UNKNOWN INDICATION
     Route: 048
  8. OMEPRAZOLE. [Concomitant]
     Active Substance: OMEPRAZOLE
     Indication: GASTROOESOPHAGEAL REFLUX DISEASE
     Dosage: UNK UNK, UNKNOWN FREQ.
     Route: 065

REACTIONS (10)
  - Abdominal discomfort [Not Recovered/Not Resolved]
  - Decreased appetite [Recovering/Resolving]
  - Chest pain [Recovered/Resolved]
  - Abdominal pain [Recovered/Resolved]
  - Musculoskeletal pain [Recovered/Resolved]
  - Back pain [Recovered/Resolved]
  - Abdominal pain upper [Not Recovered/Not Resolved]
  - Nausea [Recovering/Resolving]
  - Drug dose omission [Unknown]
  - Axillary pain [Recovered/Resolved]

NARRATIVE: CASE EVENT DATE: 20170117
